FAERS Safety Report 4423913-3 (Version None)
Quarter: 2004Q3

REPORT INFORMATION
  Report Type: 
  Country: None (occurrence: None)
  Receive Date: 20040806
  Receipt Date: 20040719
  Transmission Date: 20050211
  Serious: Yes (Death)
  Sender: FDA-Public Use
  Company Number: EWC010928299

PATIENT
  Age: 39 Year
  Sex: Male

DRUGS (5)
  1. ZYPREXA [Suspect]
     Indication: SCHIZOPHRENIA
     Dosage: 10 MG/DAY
     Dates: start: 20010210
  2. VALPROATE SODIUM [Concomitant]
  3. TRANXENE [Concomitant]
  4. LUDIOMIL [Concomitant]
  5. PARKINANE(TRIHEXYPHENIDYL HYDROCHLORIDE) [Concomitant]

REACTIONS (1)
  - DEATH [None]
